FAERS Safety Report 9451540 (Version 2)
Quarter: 2013Q4

REPORT INFORMATION
  Report Type: Spontaneous
  Country: GB (occurrence: GB)
  Receive Date: 20130811
  Receipt Date: 20131127
  Transmission Date: 20140711
  Serious: Yes (Congenital Anomaly)
  Sender: FDA-Public Use
  Company Number: GB-MYLANLABS-2013S1016760

PATIENT
  Sex: Female

DRUGS (2)
  1. GABAPENTIN [Suspect]
     Route: 064
  2. INSULIN [Concomitant]

REACTIONS (4)
  - Cerebral ventricle dilatation [Unknown]
  - Limb malformation [Unknown]
  - Caudal regression syndrome [Unknown]
  - Exposure during pregnancy [Unknown]
